FAERS Safety Report 7503252-4 (Version None)
Quarter: 2011Q2

REPORT INFORMATION
  Report Type: 
  Country: None (occurrence: None)
  Receive Date: 20110525
  Receipt Date: 20100827
  Transmission Date: 20111010
  Serious: No
  Sender: FDA-Public Use
  Company Number: A0878121A

PATIENT
  Age: 79 Year
  Sex: Female

DRUGS (4)
  1. ZYRTEC [Concomitant]
  2. BACTROBAN [Suspect]
     Dosage: 1APP THREE TIMES PER DAY
     Route: 061
     Dates: start: 20100824, end: 20100827
  3. DOXYCYCLINE [Concomitant]
  4. CORTISONE CREAM [Concomitant]

REACTIONS (1)
  - DRUG INEFFECTIVE [None]
